FAERS Safety Report 16233282 (Version 1)
Quarter: 2019Q2

REPORT INFORMATION
  Report Type: Spontaneous
  Country: US (occurrence: US)
  Receive Date: 20190424
  Receipt Date: 20190424
  Transmission Date: 20190711
  Serious: Yes (Other)
  Sender: FDA-Public Use
  Company Number: US-PFIZER INC-2019170168

PATIENT
  Age: 59 Year
  Sex: Female

DRUGS (5)
  1. METHYLPREDNISOLONE. [Concomitant]
     Active Substance: METHYLPREDNISOLONE
     Indication: COLITIS ULCERATIVE
     Dosage: UNK
     Route: 042
  2. MESALAMINE. [Concomitant]
     Active Substance: MESALAMINE
     Indication: COLITIS ULCERATIVE
     Dosage: UNK
     Route: 048
  3. ARGATROBAN. [Suspect]
     Active Substance: ARGATROBAN
     Indication: PORTAL VEIN THROMBOSIS
     Dosage: UNK
  4. METHYLPREDNISOLONE. [Concomitant]
     Active Substance: METHYLPREDNISOLONE
     Indication: HAEMATOCHEZIA
     Dosage: UNK
  5. MESALAMINE. [Concomitant]
     Active Substance: MESALAMINE
     Indication: HAEMATOCHEZIA
     Dosage: UNK (INCREASED DOSE)

REACTIONS (2)
  - Haematochezia [Unknown]
  - Depressed level of consciousness [Unknown]
